FAERS Safety Report 9912501 (Version 2)
Quarter: 2014Q3

REPORT INFORMATION
  Report Type: Other
  Country: NL (occurrence: NL)
  Receive Date: 20140220
  Receipt Date: 20140908
  Transmission Date: 20150326
  Serious: Yes (Other)
  Sender: FDA-Public Use
  Company Number: NL-BRISTOL-MYERS SQUIBB COMPANY-20247177

PATIENT

DRUGS (2)
  1. CETUXIMAB [Suspect]
     Active Substance: CETUXIMAB
     Indication: NON-SMALL CELL LUNG CANCER
     Dosage: WEEKLY DOSE OF 250 MG/M2 IV?TOTAL 6 ADMINISTRATIONS?400MG/M2
     Route: 042
  2. CISPLATIN. [Suspect]
     Active Substance: CISPLATIN
     Indication: NON-SMALL CELL LUNG CANCER
     Dosage: 5 TIMES/WK IV 1 TO 1.5 HR BEFORE RADIOTHERAPY, STRD 1WK AFTER CETUXIMAB LOADING DOSE FOR 32 DAYS
     Route: 042

REACTIONS (2)
  - Pulmonary toxicity [Unknown]
  - Pneumonia [Unknown]
